FAERS Safety Report 7056577-3 (Version None)
Quarter: 2010Q4

REPORT INFORMATION
  Report Type: 
  Country: None (occurrence: None)
  Receive Date: 20101021
  Receipt Date: 20101018
  Transmission Date: 20110411
  Serious: Yes (Other)
  Sender: FDA-Public Use
  Company Number: PT-MERCK-1010PRT00008

PATIENT
  Age: 28 Day
  Sex: Female
  Weight: 1 kg

DRUGS (3)
  1. CASPOFUNGIN ACETATE [Suspect]
     Indication: CANDIDA SEPSIS
     Route: 042
  2. AMPHOTERICIN B [Concomitant]
     Route: 042
     Dates: start: 20080401, end: 20080601
  3. NYSTATIN [Concomitant]
     Route: 065
     Dates: start: 20080401, end: 20080401

REACTIONS (1)
  - DEAFNESS BILATERAL [None]
